FAERS Safety Report 5390298-8 (Version None)
Quarter: 2007Q3

REPORT INFORMATION
  Report Type: 
  Country: None (occurrence: None)
  Receive Date: 20070718
  Receipt Date: 20070716
  Transmission Date: 20080115
  Serious: Yes (Death, Hospitalization)
  Sender: FDA-Public Use
  Company Number: FR-BRISTOL-MYERS SQUIBB COMPANY-13848130

PATIENT
  Age: 17 Year
  Sex: Male

DRUGS (17)
  1. HYDREA [Suspect]
     Indication: ACUTE MYELOID LEUKAEMIA
     Route: 048
     Dates: start: 20070423, end: 20070425
  2. AMIKLIN INJ 1 G [Suspect]
     Indication: BRONCHOPULMONARY ASPERGILLOSIS
     Dates: start: 20070520, end: 20070523
  3. CERUBIDINE [Suspect]
     Indication: ACUTE MYELOID LEUKAEMIA
     Route: 042
     Dates: start: 20070424, end: 20070424
  4. ARACYTINE [Suspect]
     Indication: ACUTE MYELOID LEUKAEMIA
     Route: 042
     Dates: start: 20070516, end: 20070518
  5. NOVANTRONE [Suspect]
     Indication: ACUTE MYELOID LEUKAEMIA
     Route: 042
     Dates: start: 20070425, end: 20070429
  6. METHOTREXATE [Suspect]
     Indication: ACUTE MYELOID LEUKAEMIA
     Route: 037
     Dates: start: 20070427, end: 20070506
  7. ARACYTINE [Suspect]
     Route: 037
     Dates: start: 20070427, end: 20070509
  8. AMSACRINE [Suspect]
     Indication: ACUTE MYELOID LEUKAEMIA
     Route: 042
     Dates: start: 20070516, end: 20070518
  9. TAZOCILLINE [Suspect]
     Indication: BRONCHOPULMONARY ASPERGILLOSIS
     Route: 042
     Dates: start: 20070430, end: 20070520
  10. FLAGYL [Suspect]
     Indication: BRONCHOPULMONARY ASPERGILLOSIS
     Route: 042
     Dates: start: 20070511, end: 20070524
  11. VFEND [Suspect]
     Indication: BRONCHOPULMONARY ASPERGILLOSIS
     Route: 042
     Dates: start: 20070516, end: 20070519
  12. TIENAM [Suspect]
     Indication: BRONCHOPULMONARY ASPERGILLOSIS
     Dates: start: 20070518, end: 20070520
  13. CANCIDAS [Suspect]
     Indication: BRONCHOPULMONARY ASPERGILLOSIS
     Route: 042
     Dates: start: 20070519, end: 20070523
  14. FORTUM [Suspect]
     Indication: BRONCHOPULMONARY ASPERGILLOSIS
     Route: 042
     Dates: start: 20070520, end: 20070524
  15. PURINETHOL [Suspect]
     Dates: start: 20070423, end: 20070423
  16. VANCOMYCIN [Concomitant]
     Dates: start: 20070501
  17. FUNGIZONE [Concomitant]
     Dates: start: 20070501

REACTIONS (17)
  - ARRHYTHMIA [None]
  - BRONCHOPULMONARY ASPERGILLOSIS [None]
  - CARDIO-RESPIRATORY ARREST [None]
  - CEREBELLAR SYNDROME [None]
  - COMA [None]
  - CONVULSION [None]
  - EYE MOVEMENT DISORDER [None]
  - HEPATIC FUNCTION ABNORMAL [None]
  - HYPERTHERMIA [None]
  - LYMPHADENITIS [None]
  - MYDRIASIS [None]
  - PERIPHERAL VASCULAR DISORDER [None]
  - POSTURING [None]
  - RESPIRATORY FAILURE [None]
  - SINUS BRADYCARDIA [None]
  - TACHYPNOEA [None]
  - VENTRICULAR FIBRILLATION [None]
